FAERS Safety Report 8905329 (Version 2)
Quarter: 2013Q1

REPORT INFORMATION
  Report Type: Spontaneous
  Country: US (occurrence: US)
  Receive Date: 20121112
  Receipt Date: 20130106
  Transmission Date: 20140127
  Serious: Yes (Life-Threatening)
  Sender: FDA-Public Use
  Company Number: US-BRISTOL-MYERS SQUIBB COMPANY-17088758

PATIENT
  Age: 56 Year
  Sex: Male
  Weight: 95.69 kg

DRUGS (14)
  1. ORENCIA [Suspect]
     Indication: RHEUMATOID ARTHRITIS
     Dosage: 1DF:125MG/1ML?SINCE TWO AND HALF TO 3 YRS?XCHANGED TO SUBCUTANOUS
     Route: 042
     Dates: end: 20120317
  2. SULFASALAZINE [Concomitant]
  3. OXYCODONE [Concomitant]
  4. AMLODIPINE [Concomitant]
  5. DIOVAN HCT [Concomitant]
     Dosage: 1DF:320-25MG?TABS
  6. LEVOTHYROXINE [Concomitant]
  7. OMEPRAZOLE [Concomitant]
  8. OXYCONTIN [Concomitant]
     Dosage: TABS
  9. METOPROLOL [Concomitant]
     Dosage: TABS
  10. ALPRAZOLAM [Concomitant]
  11. ARAVA [Concomitant]
     Dosage: TABS
  12. DOXAZOSIN [Concomitant]
  13. PRILOSEC [Concomitant]
  14. NORVASC [Concomitant]
     Dosage: TABS

REACTIONS (4)
  - Sepsis [Recovering/Resolving]
  - Diverticulitis [Recovering/Resolving]
  - Enterovesical fistula [Recovering/Resolving]
  - Dysuria [Unknown]
